FAERS Safety Report 4843863-8 (Version None)
Quarter: 2005Q4

REPORT INFORMATION
  Report Type: 
  Country: None (occurrence: None)
  Receive Date: 20051130
  Receipt Date: 20051130
  Transmission Date: 20060501
  Serious: Yes (Other)
  Sender: FDA-Public Use
  Company Number: None

PATIENT
  Sex: Female
  Weight: 68.0396 kg

DRUGS (2)
  1. CLIMARA [Suspect]
     Indication: HYSTERECTOMY
     Dosage: CHG WEEKLY
  2. CLIMARA [Suspect]
     Indication: SALPINGO-OOPHORECTOMY BILATERAL
     Dosage: CHG WEEKLY

REACTIONS (2)
  - HOT FLUSH [None]
  - THERAPEUTIC RESPONSE UNEXPECTED WITH DRUG SUBSTITUTION [None]
